FAERS Safety Report 9736259 (Version 1)
Quarter: 2013Q4

REPORT INFORMATION
  Report Type: Spontaneous
  Country: US (occurrence: None)
  Receive Date: 20131204
  Receipt Date: 20131204
  Transmission Date: 20140711
  Serious: Yes (Death)
  Sender: FDA-Public Use
  Company Number: US-ALKEM-000278

PATIENT
  Age: 86 Year
  Sex: Male

DRUGS (8)
  1. METFORMIN [Suspect]
     Dosage: ORAL
     Route: 048
  2. PRAZOSIN [Suspect]
     Dosage: ORAL
     Route: 048
  3. FUROSEMIDE [Suspect]
     Route: 048
  4. METOPROLOL [Suspect]
     Route: 048
  5. VERAPAMIL [Suspect]
  6. GLYBURIDE [Suspect]
  7. POTASSIUM CHLORIDE [Suspect]
  8. OMEPRAZOLE [Suspect]

REACTIONS (3)
  - Medication error [None]
  - Exposure via ingestion [None]
  - Overdose [None]
